FAERS Safety Report 7910148-2 (Version None)
Quarter: 2011Q4

REPORT INFORMATION
  Report Type: 
  Country: None (occurrence: None)
  Receive Date: 20111111
  Receipt Date: 20111104
  Transmission Date: 20120403
  Serious: Yes (Other)
  Sender: FDA-Public Use
  Company Number: US-US-EMD SERONO, INC.-7092419

PATIENT
  Sex: Female
  Weight: 101 kg

DRUGS (7)
  1. LEVOXYL [Concomitant]
     Indication: HYPOTHYROIDISM
  2. ABILIFY [Concomitant]
     Indication: BIPOLAR DISORDER
  3. ZANAFLEX [Concomitant]
  4. REBIF [Suspect]
     Indication: MULTIPLE SCLEROSIS
     Route: 058
     Dates: start: 20091109
  5. CITALOPRAM HYDROBROMIDE [Concomitant]
     Indication: BIPOLAR DISORDER
  6. AMANTADINE HCL [Concomitant]
  7. RANITIDINE [Concomitant]

REACTIONS (1)
  - OSTEONECROSIS [None]
